FAERS Safety Report 6908869-3 (Version None)
Quarter: 2010Q3

REPORT INFORMATION
  Report Type: 
  Country: None (occurrence: None)
  Receive Date: 20100805
  Receipt Date: 20100728
  Transmission Date: 20110219
  Serious: Yes (Other)
  Sender: FDA-Public Use
  Company Number: US-AMGEN-KDL426736

PATIENT
  Sex: Female

DRUGS (3)
  1. ENBREL [Suspect]
     Indication: PRODUCT USED FOR UNKNOWN INDICATION
  2. PEG-INTRON [Concomitant]
     Route: 058
     Dates: start: 20100412
  3. RIBAVIRIN [Concomitant]
     Route: 048
     Dates: start: 20100412

REACTIONS (7)
  - CHEST PAIN [None]
  - HEADACHE [None]
  - INJECTION SITE ERYTHEMA [None]
  - INJECTION SITE PRURITUS [None]
  - INTENTIONAL DRUG MISUSE [None]
  - MYALGIA [None]
  - SARCOIDOSIS [None]
